FAERS Safety Report 9147037 (Version 6)
Quarter: 2015Q2

REPORT INFORMATION
  Report Type: Report from Study
  Country: BE (occurrence: BE)
  Receive Date: 20130307
  Receipt Date: 20150626
  Transmission Date: 20150821
  Serious: Yes (Hospitalization)
  Sender: FDA-Public Use
  Company Number: BE-UCBSA-079373

PATIENT
  Age: 77 Year
  Sex: Female
  Weight: 68 kg

DRUGS (14)
  1. BETAHISTINE [Concomitant]
     Active Substance: BETAHISTINE
  2. ESCITALOPRAM [Concomitant]
     Active Substance: ESCITALOPRAM OXALATE
  3. REDOMEX [Concomitant]
  4. CONTRAMAL [Concomitant]
     Active Substance: TRAMADOL HYDROCHLORIDE
  5. FOLIC ACID. [Concomitant]
     Active Substance: FOLIC ACID
  6. D-CURE [Concomitant]
  7. DICLOFENAC [Suspect]
     Active Substance: DICLOFENAC
     Dates: start: 20120601, end: 20130226
  8. METHOTREXATE [Concomitant]
     Active Substance: METHOTREXATE
     Indication: RHEUMATOID ARTHRITIS
  9. LORMETAZEPAM [Concomitant]
     Active Substance: LORMETAZEPAM
  10. CERTOLIZUMAB PEGOL RA [Suspect]
     Active Substance: CERTOLIZUMAB PEGOL
     Indication: RHEUMATOID ARTHRITIS
     Dosage: NO OF DOSES RECEIVED: 20
     Route: 058
     Dates: start: 20120710
  11. EMCONCOR [Concomitant]
     Active Substance: BISOPROLOL FUMARATE
  12. CLOZAN [Concomitant]
  13. STEOVIT [Concomitant]
     Active Substance: CALCIUM CARBONATE
  14. PREDNISOLONE. [Concomitant]
     Active Substance: PREDNISOLONE

REACTIONS (1)
  - Gastrointestinal ulcer haemorrhage [Recovered/Resolved]

NARRATIVE: CASE EVENT DATE: 20130226
